FAERS Safety Report 6664387-1 (Version None)
Quarter: 2010Q2

REPORT INFORMATION
  Report Type: 
  Country: None (occurrence: None)
  Receive Date: 20100401
  Receipt Date: 20100329
  Transmission Date: 20101027
  Serious: Yes (Life-Threatening, Other)
  Sender: FDA-Public Use
  Company Number: PHHY2010JP18977

PATIENT
  Age: 86 Year
  Sex: Male

DRUGS (2)
  1. RASILEZ [Suspect]
     Indication: HYPERTENSION
     Dosage: 150 MG DAILY
     Route: 048
  2. MICARDIS [Concomitant]
     Dosage: 40 MG, UNK
     Route: 048

REACTIONS (3)
  - HYPERKALAEMIA [None]
  - LIVER DISORDER [None]
  - SHOCK [None]
